FAERS Safety Report 10578506 (Version 1)
Quarter: 2014Q4

REPORT INFORMATION
  Report Type: Spontaneous
  Country: US (occurrence: None)
  Receive Date: 20141111
  Receipt Date: 20141111
  Transmission Date: 20150529
  Serious: No
  Sender: FDA-Public Use
  Company Number: None

PATIENT
  Age: 85 Year
  Sex: Male

DRUGS (1)
  1. ZAROXOLYN [Suspect]
     Active Substance: METOLAZONE
     Indication: JOINT SWELLING
     Route: 048
     Dates: start: 20141014, end: 20141110

REACTIONS (1)
  - Renal failure [None]

NARRATIVE: CASE EVENT DATE: 20141110
